FAERS Safety Report 24620618 (Version 1)
Quarter: 2024Q4

REPORT INFORMATION
  Report Type: Spontaneous
  Country: ES (occurrence: ES)
  Receive Date: 20241114
  Receipt Date: 20241114
  Transmission Date: 20250115
  Serious: Yes (Other)
  Sender: JOHNSON AND JOHNSON
  Company Number: ES-JNJFOC-20240977036

PATIENT
  Age: 31 Year
  Sex: Female

DRUGS (1)
  1. CONCERTA [Suspect]
     Active Substance: METHYLPHENIDATE HYDROCHLORIDE
     Indication: Attention deficit hyperactivity disorder
     Route: 048
     Dates: start: 2016

REACTIONS (8)
  - Suicidal ideation [Unknown]
  - Road traffic accident [Unknown]
  - Attention deficit hyperactivity disorder [Unknown]
  - Panic attack [Unknown]
  - Tachycardia [Unknown]
  - Insomnia [Unknown]
  - Product availability issue [Unknown]
  - Therapy interrupted [Unknown]
